FAERS Safety Report 17681473 (Version 3)
Quarter: 2020Q2

REPORT INFORMATION
  Report Type: Spontaneous
  Country: JP (occurrence: JP)
  Receive Date: 20200417
  Receipt Date: 20200505
  Transmission Date: 20200714
  Serious: Yes (Hospitalization, Other)
  Sender: FDA-Public Use
  Company Number: JP-JNJFOC-20200415630

PATIENT
  Age: 7 Decade
  Sex: Male

DRUGS (9)
  1. VALERIN                            /00228502/ [Concomitant]
     Active Substance: VALPROATE SODIUM
     Indication: SCHIZOPHRENIA
     Dosage: PERORAL MEDICINE
     Route: 048
  2. LONASEN [Suspect]
     Active Substance: BLONANSERIN
     Indication: SCHIZOPHRENIA
     Route: 062
  3. LONASEN [Suspect]
     Active Substance: BLONANSERIN
     Route: 062
     Dates: start: 20200325
  4. BLONANSERIN [Concomitant]
     Active Substance: BLONANSERIN
     Indication: SCHIZOPHRENIA
     Dosage: PER ORAL MEDICINE
     Route: 048
  5. RIVOTRIL [Concomitant]
     Active Substance: CLONAZEPAM
     Indication: SCHIZOPHRENIA
     Dosage: PER ORAL MEDICINE
     Route: 048
  6. XEPLION [Suspect]
     Active Substance: PALIPERIDONE PALMITATE
     Indication: SCHIZOPHRENIA
     Route: 030
     Dates: start: 20200313, end: 20200313
  7. XEPLION [Suspect]
     Active Substance: PALIPERIDONE PALMITATE
     Route: 030
     Dates: start: 20200318
  8. XEPLION [Suspect]
     Active Substance: PALIPERIDONE PALMITATE
  9. QUETIAPINE. [Concomitant]
     Active Substance: QUETIAPINE
     Indication: SCHIZOPHRENIA
     Dosage: PER ORAL MEDICINE
     Route: 048

REACTIONS (7)
  - Altered state of consciousness [Recovering/Resolving]
  - Pneumonia aspiration [Unknown]
  - Bradycardia [Unknown]
  - Sedation complication [Unknown]
  - Hypothermia [Unknown]
  - Hypoglycaemia [Unknown]
  - Seizure [Unknown]

NARRATIVE: CASE EVENT DATE: 2020
